FAERS Safety Report 9527677 (Version 1)
Quarter: 2013Q1

REPORT INFORMATION
  Report Type: Spontaneous
  Country: US (occurrence: None)
  Receive Date: 20130314
  Receipt Date: 20130314
  Transmission Date: 20140127
  Serious: Yes (Other)
  Sender: FDA-Public Use
  Company Number: 2013PROUSA02500

PATIENT
  Age: 66 Year
  Sex: Male

DRUGS (1)
  1. PROVENGE [Suspect]
     Indication: PROSTATE CANCER METASTATIC
     Dosage: 250 ML, SINGLE, INTRAVENOUS?250 ML, SINGLE, INTRAVENOUS?250 ML, SINGLE, INTRAVENOUS

REACTIONS (1)
  - Anaemia [None]
